FAERS Safety Report 9630656 (Version 1)
Quarter: 2013Q4

REPORT INFORMATION
  Report Type: Spontaneous
  Country: US (occurrence: None)
  Receive Date: 20131015
  Receipt Date: 20131015
  Transmission Date: 20140711
  Serious: Yes (Hospitalization)
  Sender: FDA-Public Use
  Company Number: QSC-2013-0362

PATIENT
  Age: 18 Year
  Sex: Male

DRUGS (2)
  1. H.P. ACTHAR [Suspect]
     Indication: FOCAL SEGMENTAL GLOMERULOSCLEROSIS
     Dosage: 80 UNITS, BIW, SUBCUTANEOUS
     Route: 058
  2. CYCLOSPORINE (CICLOSPORIN) [Concomitant]

REACTIONS (4)
  - Pleural effusion [None]
  - Fluid overload [None]
  - Nephrotic syndrome [None]
  - Treatment failure [None]
